FAERS Safety Report 6665802-X (Version None)
Quarter: 2010Q1

REPORT INFORMATION
  Report Type: 
  Country: None (occurrence: None)
  Receive Date: 20100330
  Receipt Date: 20100308
  Transmission Date: 20100710
  Serious: Yes (Other)
  Sender: FDA-Public Use
  Company Number: AUR-APL-2010-00829

PATIENT
  Age: 62 Year
  Sex: Female

DRUGS (5)
  1. METFORMIN HCL [Suspect]
     Dosage: 1000MG, BID
  2. GLIPIZIDE [Suspect]
     Dosage: 5 MG, BID
  3. SIMVASTATIN [Concomitant]
  4. ACETYLSALICYLIC ACID [Concomitant]
  5. ONGLYZA [Suspect]
     Dosage: 5 MG

REACTIONS (1)
  - VISION BLURRED [None]
